FAERS Safety Report 6313571-5 (Version None)
Quarter: 2009Q3

REPORT INFORMATION
  Report Type: 
  Country: None (occurrence: None)
  Receive Date: 20090814
  Receipt Date: 20090729
  Transmission Date: 20100115
  Serious: Yes (Hospitalization)
  Sender: FDA-Public Use
  Company Number: S07-FRA-00554-01

PATIENT
  Age: 85 Year
  Sex: Female
  Weight: 67 kg

DRUGS (6)
  1. EBIXA (MEMANTINE) (TABLETS) [Suspect]
     Dosage: 10 MG (5 MG, 2 IN 1 D), ORAL
     Route: 048
     Dates: start: 20050414, end: 20061215
  2. ZYPREXA [Suspect]
     Indication: DEPRESSION
     Dosage: 5 MG (5 MG, 1 IN 1 D), ORAL
     Route: 048
     Dates: start: 20060707, end: 20061217
  3. ATHYMIL (MIANSERIN HYDROCHLORIDE) (MIANSERIN HYDROCHLORIDE) [Concomitant]
  4. LEXOMIL (BROMAZEPAM) (BROMAZEPAM) [Concomitant]
  5. TEMESTA (LORAZEPAM)(LORAZEPAM) [Concomitant]
  6. PARACETAMOL (PARACETAMOL) (PARACETAMOL) [Concomitant]

REACTIONS (6)
  - DEPRESSION [None]
  - ESCHERICHIA BACTERAEMIA [None]
  - PYELONEPHRITIS [None]
  - RENAL FAILURE ACUTE [None]
  - RHABDOMYOLYSIS [None]
  - SEPSIS [None]
